FAERS Safety Report 12773523 (Version 4)
Quarter: 2016Q4

REPORT INFORMATION
  Report Type: Spontaneous
  Country: CA (occurrence: CA)
  Receive Date: 20160922
  Receipt Date: 20161018
  Transmission Date: 20170207
  Serious: Yes (Life-Threatening, Other)
  Sender: FDA-Public Use
  Company Number: CA-BEH-2016073616

PATIENT
  Age: 63 Year
  Sex: Female

DRUGS (6)
  1. TYLENOL [Concomitant]
     Active Substance: ACETAMINOPHEN
     Route: 065
  2. PANTOLOC                           /01263204/ [Concomitant]
     Active Substance: PANTOPRAZOLE SODIUM
     Route: 065
  3. NICODERM CQ [Concomitant]
     Active Substance: NICOTINE
     Route: 065
  4. PRIVIGEN [Suspect]
     Active Substance: HUMAN IMMUNOGLOBULIN G
     Indication: GUILLAIN-BARRE SYNDROME
     Dosage: 20 G, TOT
     Route: 065
     Dates: start: 20160319, end: 20160319
  5. STATEX                             /00036302/ [Concomitant]
     Active Substance: MORPHINE SULFATE
     Dosage: 5 MG, Q4H
     Route: 065
  6. HEPARIN [Concomitant]
     Active Substance: HEPARIN SODIUM
     Dosage: 500 UNK, UNK
     Route: 058

REACTIONS (19)
  - Hypopnoea [Unknown]
  - Discomfort [Unknown]
  - Hypokinesia [Unknown]
  - Dyspnoea [Unknown]
  - Depressed level of consciousness [Unknown]
  - Tachycardia [Unknown]
  - Total lung capacity decreased [Unknown]
  - Hypertension [Recovered/Resolved]
  - Acute respiratory distress syndrome [Unknown]
  - Atelectasis [Unknown]
  - Breath sounds abnormal [Unknown]
  - Tracheal disorder [Unknown]
  - Acute myocardial infarction [Unknown]
  - Respiratory failure [Unknown]
  - Oxygen saturation decreased [Unknown]
  - Hypoxia [Unknown]
  - Pneumonia aspiration [Unknown]
  - Chest discomfort [Unknown]
  - Troponin increased [Unknown]

NARRATIVE: CASE EVENT DATE: 20160319
